FAERS Safety Report 4333997-9 (Version None)
Quarter: 2004Q2

REPORT INFORMATION
  Report Type: 
  Country: None (occurrence: None)
  Receive Date: 20040402
  Receipt Date: 20040323
  Transmission Date: 20050107
  Serious: Yes (Death, Other)
  Sender: FDA-Public Use
  Company Number: TW-SHR-04-022095

PATIENT
  Age: 59 Year
  Sex: Male

DRUGS (4)
  1. ULTRAVIST 300 [Suspect]
     Indication: SCAN BRAIN
     Dosage: INTRAVENOUS
     Route: 042
     Dates: start: 20040302, end: 20040302
  2. HALOPERIDOL [Concomitant]
  3. CLONAZEPAM [Concomitant]
  4. INSULIN [Concomitant]

REACTIONS (4)
  - BLOOD PRESSURE DECREASED [None]
  - BLOOD PRESSURE FLUCTUATION [None]
  - DYSPNOEA [None]
  - LOSS OF CONSCIOUSNESS [None]
